FAERS Safety Report 6393023-7 (Version None)
Quarter: 2009Q4

REPORT INFORMATION
  Report Type: 
  Country: None (occurrence: None)
  Receive Date: 20091008
  Receipt Date: 20080529
  Transmission Date: 20100525
  Serious: Yes (Hospitalization, Other)
  Sender: FDA-Public Use
  Company Number: US-ASTRAZENECA-2007UW07504

PATIENT
  Age: 301 Month
  Sex: Male
  Weight: 78 kg

DRUGS (15)
  1. SEROQUEL [Suspect]
     Indication: SCHIZOPHRENIA
     Dosage: 200 MG TO 600 MG EVERY NIGHT AT BEDTIME
     Route: 048
     Dates: start: 20030801
  2. SEROQUEL [Suspect]
     Dosage: 400 MG-800 MG
     Route: 048
     Dates: start: 20030808, end: 20060523
  3. HALDOL [Concomitant]
     Dates: start: 20040101, end: 20050101
  4. RISPERDAL [Concomitant]
     Dates: start: 20040101
  5. PERIACTIN [Concomitant]
     Dates: start: 20040101
  6. KLONOPIN [Concomitant]
     Dates: start: 20040101, end: 20060101
  7. CELEXA [Concomitant]
     Dates: start: 20050101
  8. COGENTIN (BENZATROPINE) [Concomitant]
     Dates: start: 20040101
  9. XANAX [Concomitant]
     Dates: start: 20050101
  10. LITHOBID (LITHIUM )/LITHIUM ER [Concomitant]
     Route: 048
     Dates: start: 20030801
  11. LITHOBID (LITHIUM )/LITHIUM ER [Concomitant]
     Dates: start: 20040101, end: 20060101
  12. DEPAKOTE (DIVALPROEX SODIUM)/DEPAKOTE EC [Concomitant]
     Dosage: 250 MG TO 500 MG EVERY NIGHT AT BEDTIME
     Route: 048
     Dates: start: 20030918
  13. DEPAKOTE (DIVALPROEX SODIUM)/DEPAKOTE EC [Concomitant]
     Dosage: 250 MG AND 500 MG
     Dates: start: 20040101
  14. ROXICET [Concomitant]
     Indication: ABDOMINAL DISCOMFORT
     Dosage: 5/375 3 TIMES A DAY, 20 MG QID
     Dates: start: 20030801
  15. SYNTHROID [Concomitant]
     Dates: start: 20060101

REACTIONS (7)
  - DECUBITUS ULCER [None]
  - GASTROINTESTINAL HAEMORRHAGE [None]
  - OVERDOSE [None]
  - PANCREATITIS [None]
  - RECTAL HAEMORRHAGE [None]
  - THERMAL BURN [None]
  - TYPE 2 DIABETES MELLITUS [None]
